FAERS Safety Report 7571423-7 (Version None)
Quarter: 2011Q2

REPORT INFORMATION
  Report Type: 
  Country: None (occurrence: None)
  Receive Date: 20110624
  Receipt Date: 20110613
  Transmission Date: 20111010
  Serious: Yes (Other)
  Sender: FDA-Public Use
  Company Number: GB-SANOFI-AVENTIS-2011SA037299

PATIENT

DRUGS (2)
  1. CAPECITABINE [Suspect]
     Route: 048
  2. OXALIPLATIN [Suspect]
     Route: 042

REACTIONS (13)
  - TOXICITY TO VARIOUS AGENTS [None]
  - ANAEMIA [None]
  - NEUTROPENIA [None]
  - LETHARGY [None]
  - STOMATITIS [None]
  - DIARRHOEA [None]
  - VOMITING [None]
  - DECREASED APPETITE [None]
  - THROMBOCYTOPENIA [None]
  - NAUSEA [None]
  - PALMAR-PLANTAR ERYTHRODYSAESTHESIA SYNDROME [None]
  - NEUROTOXICITY [None]
  - PAIN [None]
